FAERS Safety Report 4515204-7 (Version None)
Quarter: 2004Q4

REPORT INFORMATION
  Report Type: 
  Country: None (occurrence: None)
  Receive Date: 20041201
  Receipt Date: 20041112
  Transmission Date: 20050328
  Serious: Yes (Life-Threatening)
  Sender: FDA-Public Use
  Company Number: FR-GLAXOSMITHKLINE-B0356847A

PATIENT
  Age: 73 Year
  Sex: Male
  Weight: 46 kg

DRUGS (11)
  1. FORTUM [Suspect]
     Indication: PSEUDOMONAS INFECTION
     Route: 065
     Dates: start: 20040801, end: 20040810
  2. AMIKLIN [Suspect]
     Indication: PSEUDOMONAS INFECTION
     Route: 065
     Dates: start: 20040801, end: 20040810
  3. ORELOX [Suspect]
     Indication: PSEUDOMONAS INFECTION
     Route: 048
     Dates: start: 20040801, end: 20040814
  4. SOLUPRED [Suspect]
     Route: 048
     Dates: start: 20040811, end: 20040814
  5. MOPRAL [Suspect]
     Route: 048
     Dates: start: 20040811, end: 20040814
  6. CLAMOXYL [Concomitant]
     Route: 065
     Dates: start: 20040701, end: 20040701
  7. NASONEX [Concomitant]
     Route: 065
  8. SURBRONC [Concomitant]
     Route: 065
  9. AMLOR [Concomitant]
     Route: 065
  10. ART 50 [Concomitant]
     Route: 065
  11. TANAKAN [Concomitant]
     Route: 065

REACTIONS (13)
  - ASTHENIA [None]
  - CHROMATURIA [None]
  - COUGH [None]
  - FAECES DISCOLOURED [None]
  - HEPATIC FIBROSIS [None]
  - HEPATITIS CHOLESTATIC [None]
  - HEPATOMEGALY [None]
  - INSOMNIA [None]
  - JAUNDICE [None]
  - LIVER DISORDER [None]
  - PRURITUS [None]
  - PYREXIA [None]
  - SPUTUM DISCOLOURED [None]
